FAERS Safety Report 26070623 (Version 1)
Quarter: 2025Q4

REPORT INFORMATION
  Report Type: Spontaneous
  Country: CA (occurrence: CA)
  Receive Date: 20251120
  Receipt Date: 20251120
  Transmission Date: 20260117
  Serious: Yes (Hospitalization, Other)
  Sender: PFIZER
  Company Number: CA-PFIZER INC-202500214158

PATIENT
  Age: 50 Year
  Sex: Male

DRUGS (6)
  1. IXIFI [Suspect]
     Active Substance: INFLIXIMAB-QBTX
     Indication: Colitis ulcerative
     Dosage: 5 MG/KG, EVERY 8 WEEKS
     Route: 042
     Dates: start: 20250902
  2. PANTOPRAZOLE SODIUM [Concomitant]
     Active Substance: PANTOPRAZOLE SODIUM
     Dosage: 40 MG
  3. MESALAMINE [Concomitant]
     Active Substance: MESALAMINE
     Dosage: 4.8 G, 1 DF
  4. MESALAMINE [Concomitant]
     Active Substance: MESALAMINE
     Dosage: 1 DF
  5. ALENDRONATE [Concomitant]
     Active Substance: ALENDRONATE SODIUM
     Dosage: 70 MG
  6. PREDNISONE [Concomitant]
     Active Substance: PREDNISONE
     Dosage: 40 MG
     Dates: start: 20221201

REACTIONS (3)
  - Immune system disorder [Unknown]
  - Bacterial infection [Unknown]
  - Pyrexia [Unknown]

NARRATIVE: CASE EVENT DATE: 20250101
